FAERS Safety Report 17240938 (Version 1)
Quarter: 2020Q1

REPORT INFORMATION
  Report Type: Report from Study
  Country: US (occurrence: US)
  Receive Date: 20200107
  Receipt Date: 20200107
  Transmission Date: 20200409
  Serious: Yes (Other)
  Sender: FDA-Public Use
  Company Number: US-TEVA-2020-US-1163165

PATIENT
  Age: 61 Year
  Sex: Female

DRUGS (4)
  1. LAROTRECTINIB [Suspect]
     Active Substance: LAROTRECTINIB
     Indication: PANCREATIC CARCINOMA METASTATIC
     Dosage: 200 MILLIGRAM DAILY;
     Route: 048
  2. NAB-PACLITAXEL [Suspect]
     Active Substance: PACLITAXEL
     Indication: PANCREATIC CARCINOMA METASTATIC
     Route: 065
  3. ADI-PEG 20 [Suspect]
     Active Substance: PEGARGIMINASE
     Indication: PANCREATIC CARCINOMA METASTATIC
     Route: 065
  4. GEMCITABINE. [Suspect]
     Active Substance: GEMCITABINE
     Indication: PANCREATIC CARCINOMA METASTATIC
     Route: 065

REACTIONS (2)
  - Drug resistance [Unknown]
  - Haemolytic uraemic syndrome [Unknown]
